FAERS Safety Report 16384284 (Version 1)
Quarter: 2019Q2

REPORT INFORMATION
  Report Type: Spontaneous
  Country: US (occurrence: US)
  Receive Date: 20190531
  Receipt Date: 20190531
  Transmission Date: 20190711
  Serious: Yes (Hospitalization)
  Sender: FDA-Public Use
  Company Number: None

PATIENT
  Age: 76 Year
  Sex: Female

DRUGS (5)
  1. ENOXAPARIN 60MG/0.6ML INJECTION SYRINGE [Concomitant]
     Dates: start: 20190215, end: 20190225
  2. PROMACTA [Suspect]
     Active Substance: ELTROMBOPAG OLAMINE
     Indication: THROMBOCYTOPENIA
     Route: 048
  3. PREDNISONE 10MG TABLETS [Concomitant]
     Active Substance: PREDNISONE
     Dates: start: 20190515
  4. HYDROCODONE/ACETAMINOPHEN 5-325MG TABLETS [Concomitant]
     Dates: start: 20190503, end: 20190506
  5. OXYCODONE 5MG IMMEDIATE RELEASE TABLETS [Concomitant]
     Dates: start: 20190425, end: 20190430

REACTIONS (1)
  - Thrombosis [None]

NARRATIVE: CASE EVENT DATE: 20190525
